FAERS Safety Report 9555310 (Version 1)
Quarter: 2013Q3

REPORT INFORMATION
  Report Type: Spontaneous
  Country: US (occurrence: None)
  Receive Date: 20130816
  Receipt Date: 20130816
  Transmission Date: 20140515
  Serious: No
  Sender: FDA-Public Use
  Company Number: US-011604

PATIENT
  Age: 58 Year
  Sex: Female
  Weight: 61.24 kg

DRUGS (1)
  1. PICO-SALAX (NOT SPECIFIED) [Suspect]
     Indication: BOWEL PREPARATION
     Dosage: ONE PACKET MIXED IN 5OZ WATER @ 1800 AND 1 PACKET MIXED IN 5OZ WATER @2100?
     Dates: start: 20130328, end: 20130328

REACTIONS (1)
  - Drug effect incomplete [None]
